FAERS Safety Report 6566495-2 (Version None)
Quarter: 2010Q1

REPORT INFORMATION
  Report Type: 
  Country: None (occurrence: None)
  Receive Date: 20100127
  Receipt Date: 20100114
  Transmission Date: 20100710
  Serious: No
  Sender: FDA-Public Use
  Company Number: 2010010031

PATIENT
  Age: 54 Year
  Sex: Male

DRUGS (3)
  1. ONSOLIS [Suspect]
  2. PREDNISONE [Concomitant]
  3. OXYCODONE HCL [Concomitant]

REACTIONS (1)
  - NO ADVERSE EVENT [None]
